FAERS Safety Report 6234402-8 (Version None)
Quarter: 2009Q2

REPORT INFORMATION
  Report Type: 
  Country: None (occurrence: None)
  Receive Date: 20090615
  Receipt Date: 20090504
  Transmission Date: 20091009
  Serious: No
  Sender: FDA-Public Use
  Company Number: DSA_33595_2009

PATIENT
  Sex: Female

DRUGS (2)
  1. XENAZINE [Suspect]
     Indication: TARDIVE DYSKINESIA
     Dosage: (25 MG), (25 MG TID)
     Dates: start: 20090210, end: 20090216
  2. XENAZINE [Suspect]
     Indication: TARDIVE DYSKINESIA
     Dosage: (25 MG), (25 MG TID)
     Dates: start: 20090217, end: 20090424

REACTIONS (2)
  - DYSKINESIA [None]
  - MUSCLE SPASMS [None]
